FAERS Safety Report 5878392-6 (Version None)
Quarter: 2008Q3

REPORT INFORMATION
  Report Type: 
  Country: None (occurrence: None)
  Receive Date: 20080911
  Receipt Date: 20080901
  Transmission Date: 20090109
  Serious: Yes (Other)
  Sender: FDA-Public Use
  Company Number: UA-PFIZER INC-2008073309

PATIENT
  Sex: Female

DRUGS (3)
  1. CADUET [Suspect]
     Indication: MYOCARDIAL ISCHAEMIA
     Dosage: TEXT:10/10MG
     Route: 048
  2. CADUET [Suspect]
     Indication: MYOCARDIAL FIBROSIS
  3. CARDIKET [Concomitant]
     Route: 048

REACTIONS (8)
  - ALANINE AMINOTRANSFERASE INCREASED [None]
  - COAGULATION TIME PROLONGED [None]
  - EOSINOPHILIA [None]
  - HAEMORRHAGIC URTICARIA [None]
  - LEUKOCYTOSIS [None]
  - LYMPHOPENIA [None]
  - PRURITUS [None]
  - THYMOL TURBIDITY TEST INCREASED [None]
